FAERS Safety Report 6487439-8 (Version None)
Quarter: 2009Q4

REPORT INFORMATION
  Report Type: 
  Country: None (occurrence: None)
  Receive Date: 20091209
  Receipt Date: 20091209
  Transmission Date: 20100525
  Serious: No
  Sender: FDA-Public Use
  Company Number: None

PATIENT
  Age: 43 Year
  Sex: Female
  Weight: 56.6996 kg

DRUGS (1)
  1. LYRICA [Suspect]
     Indication: FIBROMYALGIA
     Dosage: 25 MG 1/DAY PO
     Route: 048
     Dates: start: 20091201, end: 20091202

REACTIONS (15)
  - DIZZINESS [None]
  - DRY MOUTH [None]
  - DYSGEUSIA [None]
  - FEELING ABNORMAL [None]
  - FEELING DRUNK [None]
  - HYPERAESTHESIA [None]
  - LIP DRY [None]
  - LIP SWELLING [None]
  - MEMORY IMPAIRMENT [None]
  - NAUSEA [None]
  - OEDEMA MOUTH [None]
  - PAROSMIA [None]
  - RASH [None]
  - VISION BLURRED [None]
  - VOMITING [None]
